FAERS Safety Report 17411207 (Version 1)
Quarter: 2020Q1

REPORT INFORMATION
  Report Type: Spontaneous
  Country: US (occurrence: US)
  Receive Date: 20200128
  Receipt Date: 20200128
  Transmission Date: 20200409
  Serious: No
  Sender: FDA-Public Use
  Company Number: None

PATIENT
  Age: 59 Year
  Sex: Female

DRUGS (2)
  1. VERZENIO [Concomitant]
     Active Substance: ABEMACICLIB
  2. FULVESTRANT 250MG/5ML PFS (2/BOX) [Suspect]
     Active Substance: FULVESTRANT
     Indication: BREAST CANCER
     Dosage: ?          OTHER DOSE:500MG EVERY 4 WEEK;OTHER FREQUENCY:OTHER;?
     Route: 030
     Dates: start: 201912

REACTIONS (1)
  - Diarrhoea [None]

NARRATIVE: CASE EVENT DATE: 20200128
